FAERS Safety Report 15111191 (Version 1)
Quarter: 2018Q3

REPORT INFORMATION
  Report Type: Spontaneous
  Country: DE (occurrence: DE)
  Receive Date: 20180705
  Receipt Date: 20180705
  Transmission Date: 20181010
  Serious: Yes (Other)
  Sender: FDA-Public Use
  Company Number: DE-DSJP-DSE-2018-125154

PATIENT

DRUGS (1)
  1. LIXIANA [Suspect]
     Active Substance: EDOXABAN TOSYLATE
     Indication: ATRIAL FIBRILLATION
     Dosage: UNK MG, UNK
     Route: 048
     Dates: start: 2018, end: 2018

REACTIONS (2)
  - Atrial thrombosis [Not Recovered/Not Resolved]
  - Atrial fibrillation [Not Recovered/Not Resolved]

NARRATIVE: CASE EVENT DATE: 2018
